FAERS Safety Report 5529807-4 (Version None)
Quarter: 2007Q4

REPORT INFORMATION
  Report Type: 
  Country: None (occurrence: None)
  Receive Date: 20071129
  Receipt Date: 20070919
  Transmission Date: 20080405
  Serious: No
  Sender: FDA-Public Use
  Company Number: US-ABBOTT-07P-163-0378869-00

PATIENT
  Sex: Male
  Weight: 120.2 kg

DRUGS (4)
  1. MERIDIA [Suspect]
     Indication: WEIGHT CONTROL
     Route: 048
     Dates: start: 20070412, end: 20070512
  2. VERAPAMIL [Concomitant]
     Indication: BLOOD PRESSURE
     Route: 048
  3. OMEPRAZOLE [Concomitant]
     Indication: BLOOD PRESSURE
     Route: 048
  4. LABETALOL HYDROCHLORIDE [Concomitant]
     Indication: BLOOD PRESSURE

REACTIONS (1)
  - WEIGHT LOSS POOR [None]
